FAERS Safety Report 23711407 (Version 1)
Quarter: 2024Q2

REPORT INFORMATION
  Report Type: Spontaneous
  Country: US (occurrence: US)
  Receive Date: 20240405
  Receipt Date: 20240405
  Transmission Date: 20240716
  Serious: No
  Sender: FDA-Public Use
  Company Number: US-ABBVIE-5705244

PATIENT

DRUGS (1)
  1. RINVOQ [Suspect]
     Active Substance: UPADACITINIB
     Indication: Rheumatoid arthritis
     Route: 048
     Dates: start: 20240327

REACTIONS (7)
  - Insomnia [Unknown]
  - Loss of personal independence in daily activities [Unknown]
  - Blood potassium decreased [Unknown]
  - Disorientation [Unknown]
  - Dysarthria [Unknown]
  - Peripheral swelling [Unknown]
  - Confusional state [Unknown]

NARRATIVE: CASE EVENT DATE: 20240101
